FAERS Safety Report 24219287 (Version 1)
Quarter: 2024Q3

REPORT INFORMATION
  Report Type: Spontaneous
  Country: CA (occurrence: CA)
  Receive Date: 20240816
  Receipt Date: 20240816
  Transmission Date: 20241016
  Serious: Yes (Death, Other)
  Sender: SANDOZ
  Company Number: CA-SANDOZ-SDZ2023CA046073

PATIENT
  Sex: Male

DRUGS (1)
  1. PIRFENIDONE [Suspect]
     Active Substance: PIRFENIDONE
     Indication: Pulmonary fibrosis
     Dosage: 801 MG, TID
     Route: 048
     Dates: start: 20231101

REACTIONS (5)
  - Death [Fatal]
  - Oxygen saturation decreased [Unknown]
  - Respiration abnormal [Unknown]
  - General physical health deterioration [Unknown]
  - Intentional product misuse [Unknown]
